FAERS Safety Report 9498513 (Version 2)
Quarter: 2013Q3

REPORT INFORMATION
  Report Type: Spontaneous
  Country: US (occurrence: US)
  Receive Date: 20130904
  Receipt Date: 20130912
  Transmission Date: 20140515
  Serious: Yes (Death, Hospitalization, Other)
  Sender: FDA-Public Use
  Company Number: US-ENDO PHARMACEUTICALS INC.-OPCR20130336

PATIENT
  Age: 28 Year
  Sex: Male

DRUGS (1)
  1. OPANA ER [Suspect]
     Indication: DRUG ABUSE
     Dosage: UNKNOWN
     Route: 042
     Dates: end: 201308

REACTIONS (6)
  - Sepsis [Fatal]
  - Endocarditis [Fatal]
  - Thrombotic thrombocytopenic purpura [Recovering/Resolving]
  - Renal failure acute [Not Recovered/Not Resolved]
  - Incorrect route of drug administration [Not Recovered/Not Resolved]
  - Drug abuse [Not Recovered/Not Resolved]
